FAERS Safety Report 14659797 (Version 1)
Quarter: 2018Q1

REPORT INFORMATION
  Report Type: Spontaneous
  Country: US (occurrence: US)
  Receive Date: 20180320
  Receipt Date: 20180320
  Transmission Date: 20180509
  Serious: Yes (Hospitalization)
  Sender: FDA-Public Use
  Company Number: US-EPIC PHARMA LLC-2018EPC00145

PATIENT
  Age: 39 Year
  Sex: Female

DRUGS (5)
  1. LORAZEPAM. [Suspect]
     Active Substance: LORAZEPAM
     Dosage: 0.5 MG, UNK
     Route: 065
  2. OXYCODONE HYDROCHLORIDE. [Suspect]
     Active Substance: OXYCODONE HYDROCHLORIDE
     Indication: BACK PAIN
     Dosage: 120 MG, UNK
     Route: 065
  3. WINE [Suspect]
     Active Substance: WINE
     Dosage: 1 GLASS
     Route: 065
  4. ALPRAZOLAM. [Suspect]
     Active Substance: ALPRAZOLAM
     Dosage: 1 MG, UNK
     Route: 065
  5. DIPHENHYDRAMINE. [Suspect]
     Active Substance: DIPHENHYDRAMINE
     Dosage: A COUPLE
     Route: 065

REACTIONS (3)
  - Compartment syndrome [Recovered/Resolved]
  - Loss of consciousness [Recovered/Resolved]
  - Drug interaction [Recovered/Resolved]
